FAERS Safety Report 11779410 (Version 1)
Quarter: 2015Q4

REPORT INFORMATION
  Report Type: Spontaneous
  Country: DK (occurrence: DK)
  Receive Date: 20151125
  Receipt Date: 20151125
  Transmission Date: 20160304
  Serious: Yes (Hospitalization)
  Sender: FDA-Public Use
  Company Number: DK-PFIZER INC-2015402193

PATIENT
  Age: 69 Year
  Sex: Male

DRUGS (6)
  1. PREDNISOLON /00016201/ [Concomitant]
     Active Substance: PREDNISOLONE
     Dosage: 5 MG DAILY, WAS TO BE DISCONTINUED GRADUALLY. DID NOT TAKE PREDNISOLON 02JUL2014
     Route: 048
     Dates: start: 20140111
  2. METHOTREXATE [Concomitant]
     Active Substance: METHOTREXATE
     Dosage: 15 MG, WEEKLY
     Route: 048
     Dates: start: 20140111
  3. PREDNISOLON /00016201/ [Concomitant]
     Active Substance: PREDNISOLONE
     Indication: RHEUMATOID ARTHRITIS
     Dosage: 20 MG DAILY FOR A WEEK
     Route: 048
     Dates: start: 20131217
  4. DEPO-MEDROL [Suspect]
     Active Substance: METHYLPREDNISOLONE ACETATE
     Indication: RHEUMATOID ARTHRITIS
     Dosage: 80 MG
     Dates: start: 20130904
  5. SULFASALAZIN MEDAC [Suspect]
     Active Substance: SULFASALAZINE
     Indication: RHEUMATOID ARTHRITIS
     Dosage: INCREASED TO 1500 MG TWICE DAILY
     Route: 048
     Dates: start: 20130904
  6. METHOTREXATE [Concomitant]
     Active Substance: METHOTREXATE
     Indication: RHEUMATOID ARTHRITIS
     Dosage: STENGTH: 2.5 MG
     Route: 048
     Dates: start: 20131217

REACTIONS (14)
  - Oropharyngeal pain [Unknown]
  - Musculoskeletal pain [Unknown]
  - Dizziness [Unknown]
  - Leukopenia [Recovered/Resolved]
  - Hypoaesthesia [Unknown]
  - Polymyalgia rheumatica [Unknown]
  - Thrombosis [Unknown]
  - Neuritis [None]
  - Pneumonia [Unknown]
  - Polyneuropathy [Unknown]
  - Ear pain [Unknown]
  - Rash [Unknown]
  - Toxicity to various agents [Unknown]
  - Pruritus generalised [Unknown]

NARRATIVE: CASE EVENT DATE: 201310
